FAERS Safety Report 4488288-2 (Version None)
Quarter: 2004Q4

REPORT INFORMATION
  Report Type: 
  Country: None (occurrence: None)
  Receive Date: 20041026
  Receipt Date: 20041014
  Transmission Date: 20050328
  Serious: Yes (Hospitalization)
  Sender: FDA-Public Use
  Company Number: US-2004-030846

PATIENT
  Age: 41 Year
  Sex: Female

DRUGS (2)
  1. MAGNEVIST [Suspect]
     Indication: NUCLEAR MAGNETIC RESONANCE IMAGING BRAIN
     Dosage: 15 ML, 1 DOSE, INTRAVENOUS
     Route: 042
     Dates: start: 20040813, end: 20040813
  2. DILANTIN D.A. (PHENYTOIN SODIUM) [Concomitant]

REACTIONS (5)
  - ANAPHYLACTIC REACTION [None]
  - FLUSHING [None]
  - MUNCHAUSEN'S SYNDROME [None]
  - RESPIRATORY ARREST [None]
  - STRIDOR [None]
